FAERS Safety Report 7275451-0 (Version None)
Quarter: 2011Q1

REPORT INFORMATION
  Report Type: 
  Country: None (occurrence: None)
  Receive Date: 20110204
  Receipt Date: 20110128
  Transmission Date: 20110831
  Serious: Yes (Hospitalization)
  Sender: FDA-Public Use
  Company Number: US-ABBOTT-11P-163-0701525-00

PATIENT
  Sex: Female
  Weight: 89.892 kg

DRUGS (5)
  1. ASACOL [Concomitant]
     Indication: COLITIS ULCERATIVE
  2. DILAUDID [Concomitant]
     Indication: PRODUCT USED FOR UNKNOWN INDICATION
  3. FUROSEMIDE [Concomitant]
     Indication: FLUID RETENTION
     Dosage: 80 MG DAILY
     Dates: start: 20101201
  4. FUROSEMIDE [Concomitant]
     Dates: end: 20101201
  5. HUMIRA [Suspect]
     Indication: COLITIS ULCERATIVE
     Dates: start: 20100601

REACTIONS (2)
  - NEPHROLITHIASIS [None]
  - WEIGHT INCREASED [None]
